FAERS Safety Report 6290662-9 (Version None)
Quarter: 2009Q3

REPORT INFORMATION
  Report Type: 
  Country: None (occurrence: None)
  Receive Date: 20090730
  Receipt Date: 20090727
  Transmission Date: 20100115
  Serious: Yes (Death, Other)
  Sender: FDA-Public Use
  Company Number: PHHY2009BR31169

PATIENT
  Sex: Female

DRUGS (6)
  1. RASILEZ [Suspect]
     Indication: DYSPNOEA
     Dosage: 1 TABLET (150 MG) IN THE MORNING
     Route: 048
     Dates: start: 20090709
  2. SIMVASTATIN [Concomitant]
  3. GINKGO BILOBA [Concomitant]
  4. FUROSEMIDE [Concomitant]
  5. SUSTRATE [Concomitant]
  6. LOSARTAN POTASSIUM [Concomitant]

REACTIONS (2)
  - CARDIOMYOPATHY [None]
  - LEFT VENTRICULAR HYPERTROPHY [None]
